FAERS Safety Report 9455665 (Version 2)
Quarter: 2013Q3

REPORT INFORMATION
  Report Type: Report from Study
  Country: DE (occurrence: DE)
  Receive Date: 20130813
  Receipt Date: 20130923
  Transmission Date: 20140515
  Serious: Yes (Hospitalization)
  Sender: FDA-Public Use
  Company Number: DE-NOVOPROD-384736

PATIENT
  Age: 49 Year
  Sex: Male
  Weight: 118.5 kg

DRUGS (7)
  1. NORDITROPIN [Suspect]
     Indication: GROWTH HORMONE DEFICIENCY
     Dosage: 0.1 MG, QD
     Route: 058
     Dates: start: 20121212, end: 20130410
  2. MINIRIN                            /00361901/ [Concomitant]
     Indication: HYPOPITUITARISM
     Dosage: 10 ?G, QD
     Route: 065
     Dates: start: 200906
  3. L-THYROXIN [Concomitant]
     Indication: HYPOPITUITARISM
     Dosage: 75 ?G, QD
     Route: 048
     Dates: start: 200906
  4. HYDROCORTISON                      /00028601/ [Concomitant]
     Indication: HYPOPITUITARISM
     Dosage: 20 MG, QD
     Route: 048
     Dates: start: 200906
  5. NEBIDO [Concomitant]
     Indication: HYPOPITUITARISM
     Dosage: 1000 MG, QD
     Route: 030
     Dates: start: 200906
  6. PANTOPRAZOL [Concomitant]
     Dosage: 40 MG, QD
     Route: 048
     Dates: start: 201112
  7. SIMVASTATIN [Concomitant]
     Dosage: 40 MG, QD
     Route: 048
     Dates: start: 201112

REACTIONS (1)
  - Pituitary haemorrhage [Recovered/Resolved]
